FAERS Safety Report 13064342 (Version 1)
Quarter: 2016Q4

REPORT INFORMATION
  Report Type: Spontaneous
  Country: US (occurrence: US)
  Receive Date: 20161224
  Receipt Date: 20161224
  Transmission Date: 20170207
  Serious: Yes (Other)
  Sender: FDA-Public Use
  Company Number: None

PATIENT
  Age: 64 Year
  Sex: Female
  Weight: 56.25 kg

DRUGS (17)
  1. CYMBALTA [Concomitant]
     Active Substance: DULOXETINE HYDROCHLORIDE
  2. TOPAMAX [Concomitant]
     Active Substance: TOPIRAMATE
  3. EFAS [Concomitant]
  4. EVOXAC [Concomitant]
     Active Substance: CEVIMELINE HYDROCHLORIDE
  5. TRAZODONE [Concomitant]
     Active Substance: TRAZODONE HYDROCHLORIDE
  6. HYDROCHLORIZIDE [Concomitant]
  7. PROBIOTICS [Concomitant]
     Active Substance: PROBIOTICS NOS
  8. TIZANIDINE. [Concomitant]
     Active Substance: TIZANIDINE
  9. MELOXICAM. [Concomitant]
     Active Substance: MELOXICAM
  10. WOMEN^S MULTI [Concomitant]
  11. CO-Q 10 [Concomitant]
  12. POTASSIUM CHOLESTEROL [Concomitant]
  13. VITAMIN E [Concomitant]
     Active Substance: .ALPHA.-TOCOPHEROL
  14. VIT. D [Concomitant]
  15. BUPRENORPHINE 8 MG. [Suspect]
     Active Substance: BUPRENORPHINE
     Indication: FIBROMYALGIA
     Dosage: QUANTITY:1 TABLET(S); TWICE A DAY; SUBLINGUAL?
     Route: 060
  16. SIMVASTATINR [Concomitant]
  17. CALCIUM [Concomitant]
     Active Substance: CALCIUM

REACTIONS (1)
  - Oral pain [None]

NARRATIVE: CASE EVENT DATE: 20161224
